FAERS Safety Report 9059078 (Version 1)
Quarter: 2013Q1

REPORT INFORMATION
  Report Type: Spontaneous
  Country: US (occurrence: US)
  Receive Date: 20130211
  Receipt Date: 20130211
  Transmission Date: 20140127
  Serious: No
  Sender: FDA-Public Use
  Company Number: US-BRISTOL-MYERS SQUIBB COMPANY-16757353

PATIENT
  Sex: Female

DRUGS (2)
  1. GLUCOPHAGE [Suspect]
     Indication: DIABETES MELLITUS
     Dosage: DURATION 10-12 YEARS. DISCONTINUED IN 2010 OR 2011
  2. ACTOS [Suspect]
     Dosage: STOPPED IN 2010 OR 2011

REACTIONS (1)
  - Renal disorder [Unknown]
